FAERS Safety Report 8017090-X (Version None)
Quarter: 2012Q1

REPORT INFORMATION
  Report Type: 
  Country: None (occurrence: None)
  Receive Date: 20120102
  Receipt Date: 20111230
  Transmission Date: 20120608
  Serious: Yes (Other)
  Sender: FDA-Public Use
  Company Number: PHEH2011US012781

PATIENT
  Sex: Female
  Weight: 59.864 kg

DRUGS (1)
  1. EXJADE [Suspect]
     Dosage: 2 DF, QD
     Route: 048

REACTIONS (2)
  - FALL [None]
  - RIB FRACTURE [None]
